FAERS Safety Report 7380217-7 (Version None)
Quarter: 2011Q1

REPORT INFORMATION
  Report Type: 
  Country: None (occurrence: None)
  Receive Date: 20110324
  Receipt Date: 20110324
  Transmission Date: 20110831
  Serious: Yes (Hospitalization)
  Sender: FDA-Public Use
  Company Number: None

PATIENT
  Age: 88 Year
  Sex: Male
  Weight: 69 kg

DRUGS (2)
  1. VITAMIN E [Suspect]
     Dosage: 400 UNITS EVERY DAY PO
     Route: 048
     Dates: start: 20101020, end: 20110318
  2. ASPIRIN [Suspect]
     Indication: PROPHYLAXIS
     Dosage: 81 MG EVERY DAY PO
     Route: 048
     Dates: start: 20101020, end: 20110318

REACTIONS (2)
  - LACERATION [None]
  - SUBDURAL HAEMATOMA [None]
